FAERS Safety Report 10287427 (Version 5)
Quarter: 2014Q4

REPORT INFORMATION
  Report Type: Spontaneous
  Country: US (occurrence: US)
  Receive Date: 20140709
  Receipt Date: 20141016
  Transmission Date: 20150528
  Serious: Yes (Hospitalization, Other)
  Sender: FDA-Public Use
  Company Number: US-GLAXOSMITHKLINE-A1062695A

PATIENT
  Age: 66 Year
  Sex: Male

DRUGS (11)
  1. NORVASC [Concomitant]
     Active Substance: AMLODIPINE BESYLATE
  2. VITAMIN E [Concomitant]
     Active Substance: .ALPHA.-TOCOPHEROL
  3. SELENIUM [Concomitant]
     Active Substance: SELENIUM
  4. ANTI-INFLAMMATORY [Concomitant]
     Active Substance: UNSPECIFIED INGREDIENT
  5. VOTRIENT [Suspect]
     Active Substance: PAZOPANIB HYDROCHLORIDE
     Indication: RENAL CANCER
     Dosage: UNK
     Dates: start: 201302
  6. VOTRIENT [Suspect]
     Active Substance: PAZOPANIB HYDROCHLORIDE
     Dosage: UNK
     Dates: start: 201302, end: 201407
  7. GEMZAR [Concomitant]
     Active Substance: GEMCITABINE HYDROCHLORIDE
  8. ONDANSETRON [Concomitant]
     Active Substance: ONDANSETRON
  9. ALEVE [Concomitant]
     Active Substance: NAPROXEN SODIUM
  10. VOTRIENT [Suspect]
     Active Substance: PAZOPANIB HYDROCHLORIDE
     Indication: NEOPLASM MALIGNANT
     Dosage: 200MG AT UNKNOWN DOSING
     Route: 048
     Dates: start: 201302
  11. ASPIRIN. [Concomitant]
     Active Substance: ASPIRIN

REACTIONS (20)
  - Vomiting [Unknown]
  - Blood sodium decreased [Unknown]
  - Blood calcium decreased [Unknown]
  - Dry eye [Unknown]
  - Eye infection [Unknown]
  - Blood magnesium decreased [Unknown]
  - Pneumonia [Unknown]
  - Pulmonary oedema [Unknown]
  - Oedema peripheral [Not Recovered/Not Resolved]
  - Blood creatinine abnormal [Unknown]
  - Pericardial effusion [Unknown]
  - Fluid retention [Unknown]
  - Thrombosis [Unknown]
  - Cardiac failure congestive [Unknown]
  - Motion sickness [Unknown]
  - Infected fistula [Unknown]
  - Rhinitis [Unknown]
  - Acute kidney injury [Unknown]
  - Hypertension [Unknown]
  - Pruritus [Unknown]

NARRATIVE: CASE EVENT DATE: 201405
